FAERS Safety Report 16350058 (Version 1)
Quarter: 2019Q2

REPORT INFORMATION
  Report Type: Report from Study
  Country: US (occurrence: US)
  Receive Date: 20190523
  Receipt Date: 20190523
  Transmission Date: 20190711
  Serious: Yes (Other)
  Sender: FDA-Public Use
  Company Number: US-BEH-2019102391

PATIENT
  Age: 58 Year
  Sex: Female
  Weight: 62.59 kg

DRUGS (2)
  1. HAEGARDA [Concomitant]
     Active Substance: HUMAN C1-ESTERASE INHIBITOR
     Indication: HEREDITARY ANGIOEDEMA
     Dosage: UNK
     Route: 065
     Dates: start: 20190506
  2. HIZENTRA [Suspect]
     Active Substance: HUMAN IMMUNOGLOBULIN G
     Indication: PRIMARY IMMUNODEFICIENCY SYNDROME
     Dosage: 20 G, QOW (REPORTED AS EVERY 14 DAYS)
     Route: 058
     Dates: start: 20190510

REACTIONS (4)
  - Infusion related reaction [Recovered/Resolved]
  - Headache [Recovered/Resolved]
  - Gastric dilatation [Recovered/Resolved]
  - Tremor [Recovered/Resolved]

NARRATIVE: CASE EVENT DATE: 20190510
